FAERS Safety Report 11783475 (Version 1)
Quarter: 2015Q4

REPORT INFORMATION
  Report Type: Spontaneous
  Country: US (occurrence: US)
  Receive Date: 20151127
  Receipt Date: 20151127
  Transmission Date: 20160305
  Serious: Yes (Other)
  Sender: FDA-Public Use
  Company Number: US-ASTRAZENECA-2015SF18413

PATIENT
  Sex: Female
  Weight: 45.4 kg

DRUGS (3)
  1. FLUCONAZOLE. [Concomitant]
     Active Substance: FLUCONAZOLE
  2. TACROLIMUS. [Concomitant]
     Active Substance: TACROLIMUS
  3. ENTOCORT EC [Suspect]
     Active Substance: BUDESONIDE
     Indication: GRAFT VERSUS HOST DISEASE IN GASTROINTESTINAL TRACT
     Route: 048
     Dates: start: 2004

REACTIONS (3)
  - Deep vein thrombosis [Unknown]
  - Contusion [Unknown]
  - Thrombosis [Unknown]
